FAERS Safety Report 5242266-4 (Version None)
Quarter: 2007Q1

REPORT INFORMATION
  Report Type: 
  Country: None (occurrence: None)
  Receive Date: 20070221
  Receipt Date: 20070212
  Transmission Date: 20070707
  Serious: Yes (Other)
  Sender: FDA-Public Use
  Company Number: ID-JNJFOC-20070107216

PATIENT
  Age: 56 Year
  Sex: Female
  Weight: 59 kg

DRUGS (11)
  1. REMICADE [Suspect]
     Route: 042
  2. REMICADE [Suspect]
     Route: 042
  3. REMICADE [Suspect]
     Indication: RHEUMATOID ARTHRITIS
     Route: 042
  4. EPINEPHRINE [Concomitant]
     Dosage: 0.3 CC DAILY
  5. PANTOZOL [Concomitant]
  6. ENDOXAN [Concomitant]
  7. FLUOROURACIL [Concomitant]
     Indication: RHEUMATOID ARTHRITIS
     Route: 042
  8. NEUROBION [Concomitant]
     Indication: DRUG INEFFECTIVE
     Dosage: 1 AMP DAILY
  9. ATP [Concomitant]
  10. PAPAVERINE HYDROCHLORIDE [Concomitant]
     Indication: RHEUMATOID ARTHRITIS
  11. HYOSCINE-N-BUTYLBROMIDE [Concomitant]

REACTIONS (4)
  - DIARRHOEA [None]
  - PERICARDIAL EFFUSION [None]
  - PLEURISY [None]
  - RASH [None]
